FAERS Safety Report 16006249 (Version 3)
Quarter: 2019Q2

REPORT INFORMATION
  Report Type: Spontaneous
  Country: JP (occurrence: JP)
  Receive Date: 20190226
  Receipt Date: 20190516
  Transmission Date: 20190711
  Serious: Yes (Other)
  Sender: FDA-Public Use
  Company Number: JP-ASTRAZENECA-2019SE31274

PATIENT
  Age: 16197 Day
  Sex: Female
  Weight: 72 kg

DRUGS (1)
  1. LYNPARZA [Suspect]
     Active Substance: OLAPARIB
     Indication: OVARIAN CANCER
     Route: 048
     Dates: start: 20181112, end: 20190218

REACTIONS (4)
  - Drug ineffective [Unknown]
  - Metastases to lymph nodes [Unknown]
  - Metastases to the mediastinum [Unknown]
  - Nausea [Recovering/Resolving]

NARRATIVE: CASE EVENT DATE: 20181113
